FAERS Safety Report 5944866-2 (Version None)
Quarter: 2008Q4

REPORT INFORMATION
  Report Type: 
  Country: None (occurrence: None)
  Receive Date: 20081107
  Receipt Date: 20081028
  Transmission Date: 20090506
  Serious: Yes (Hospitalization)
  Sender: FDA-Public Use
  Company Number: CN-BAXTER-2008BH009864

PATIENT
  Age: 14 Year
  Sex: Male
  Weight: 42 kg

DRUGS (1)
  1. RECOMBINATE [Suspect]
     Indication: FACTOR VIII DEFICIENCY
     Route: 042
     Dates: start: 20080728, end: 20080801

REACTIONS (1)
  - HAEMORRHAGE [None]
